FAERS Safety Report 5868381-X (Version None)
Quarter: 2008Q3

REPORT INFORMATION
  Report Type: 
  Country: None (occurrence: None)
  Receive Date: 20080902
  Receipt Date: 20080902
  Transmission Date: 20090109
  Serious: No
  Sender: FDA-Public Use
  Company Number: None

PATIENT
  Sex: Male
  Weight: 77.1115 kg

DRUGS (2)
  1. KROGER OMEPRAZOLE DEXCEL [Suspect]
     Indication: DYSPEPSIA
     Dosage: 1 TABLET DAILY PO
     Route: 048
     Dates: start: 20080801, end: 20080808
  2. KROGER OMEPRAZOLE DEXCEL [Suspect]
     Indication: GASTROOESOPHAGEAL REFLUX DISEASE
     Dosage: 1 TABLET DAILY PO
     Route: 048
     Dates: start: 20080801, end: 20080808

REACTIONS (3)
  - DYSPEPSIA [None]
  - NAUSEA [None]
  - PHARMACEUTICAL PRODUCT COMPLAINT [None]
